FAERS Safety Report 8130613 (Version 3)
Quarter: 2013Q1

REPORT INFORMATION
  Report Type: Spontaneous
  Country: CZ (occurrence: None)
  Receive Date: 20110831
  Receipt Date: 20130214
  Transmission Date: 20140127
  Serious: Yes (Death)
  Sender: FDA-Public Use
  Company Number: VAL_00605_2011

PATIENT
  Age: 82 Year
  Sex: Female
  Weight: 51.5 kg

DRUGS (11)
  1. CALCITRIOL [Suspect]
     Indication: NEPHROGENIC ANAEMIA
     Dosage: (DF)
     Dates: start: 20101102
  2. METHOXYPOLYOXYETHYLENE GLYCOL [Suspect]
     Indication: NEPHROGENIC ANAEMIA
     Dosage: (60 ?G, 1 X PER 1 MONTH INTRAVENOUS (NOT OTHERWISE SPCITIED))
     Route: 042
     Dates: start: 20090331, end: 20110802
  3. METOPROLOL TARTRATE [Concomitant]
  4. DALTEPARINE-DALTEPARINE SODIUM [Concomitant]
  5. FUROSEMIDE [Concomitant]
  6. OMEPRAZOLE [Concomitant]
  7. FERRIC SODIUM GLUCONATE COMPLEX [Concomitant]
  8. BISOPROLOL [Concomitant]
  9. CINACALCET [Concomitant]
  10. NOVOMIX [Concomitant]
  11. BEMIPARIN SODIUM [Concomitant]

REACTIONS (1)
  - Urinary tract infection [None]
